FAERS Safety Report 14202649 (Version 2)
Quarter: 2017Q4

REPORT INFORMATION
  Report Type: Report from Study
  Country: BR (occurrence: BR)
  Receive Date: 20171118
  Receipt Date: 20171226
  Transmission Date: 20180321
  Serious: Yes (Hospitalization, Other)
  Sender: FDA-Public Use
  Company Number: BR-ROCHE-1958299

PATIENT
  Sex: Male
  Weight: 85 kg

DRUGS (4)
  1. ACTEMRA [Suspect]
     Active Substance: TOCILIZUMAB
     Indication: RHEUMATOID ARTHRITIS
     Route: 042
     Dates: start: 20170601
  2. DICLOFENAC [Concomitant]
     Active Substance: DICLOFENAC
     Indication: PAIN
     Route: 065
  3. LEFLUNOMIDE. [Concomitant]
     Active Substance: LEFLUNOMIDE
  4. PREDNISONE. [Concomitant]
     Active Substance: PREDNISONE
     Indication: RHEUMATOID ARTHRITIS
     Route: 065

REACTIONS (19)
  - Anaphylactic shock [Recovered/Resolved]
  - Diarrhoea [Recovering/Resolving]
  - Weight decreased [Recovering/Resolving]
  - Intestinal haemorrhage [Recovering/Resolving]
  - Polyarthritis [Recovering/Resolving]
  - Haemoglobin decreased [Recovering/Resolving]
  - Blood pressure increased [Recovered/Resolved]
  - Abdominal pain [Recovering/Resolving]
  - Bacterial infection [Recovering/Resolving]
  - Blister [Recovering/Resolving]
  - Feeding disorder [Recovering/Resolving]
  - Haemorrhoids [Recovering/Resolving]
  - Vomiting [Recovering/Resolving]
  - Pain [Recovering/Resolving]
  - Swelling [Recovering/Resolving]
  - Movement disorder [Recovering/Resolving]
  - Gait disturbance [Recovering/Resolving]
  - Diverticulum [Recovering/Resolving]
  - Decreased appetite [Recovering/Resolving]
